FAERS Safety Report 19536768 (Version 1)
Quarter: 2021Q3

REPORT INFORMATION
  Report Type: Spontaneous
  Country: US (occurrence: US)
  Receive Date: 20210714
  Receipt Date: 20210714
  Transmission Date: 20211014
  Serious: No
  Sender: FDA-Public Use
  Company Number: None

PATIENT
  Age: 68 Year
  Sex: Male
  Weight: 112.95 kg

DRUGS (9)
  1. METFORMIN [Concomitant]
     Active Substance: METFORMIN HYDROCHLORIDE
  2. PIQRAY [Suspect]
     Active Substance: ALPELISIB
     Indication: BREAST CANCER
     Route: 048
  3. LETROZOLE. [Concomitant]
     Active Substance: LETROZOLE
  4. TRULICITY [Concomitant]
     Active Substance: DULAGLUTIDE
  5. MULTIVITAMIN [Concomitant]
     Active Substance: VITAMINS
  6. OXYCODONE [Concomitant]
     Active Substance: OXYCODONE
  7. IBUPROFEN. [Concomitant]
     Active Substance: IBUPROFEN
  8. LUPRON DEPOT [Concomitant]
     Active Substance: LEUPROLIDE ACETATE
  9. TRAMADOL. [Concomitant]
     Active Substance: TRAMADOL

REACTIONS (1)
  - Disease progression [None]

NARRATIVE: CASE EVENT DATE: 20210713
